FAERS Safety Report 19642154 (Version 6)
Quarter: 2021Q4

REPORT INFORMATION
  Report Type: Report from Study
  Country: JP (occurrence: JP)
  Receive Date: 20210730
  Receipt Date: 20211028
  Transmission Date: 20220303
  Serious: Yes (Hospitalization, Other)
  Sender: FDA-Public Use
  Company Number: JP-BRISTOL-MYERS SQUIBB COMPANY-BMS-2021-074004

PATIENT
  Age: 44 Year
  Sex: Female
  Weight: 69.4 kg

DRUGS (19)
  1. NIVOLUMAB [Suspect]
     Active Substance: NIVOLUMAB
     Indication: Gastric cancer
     Dosage: 360 MILLIGRAM, Q3WK
     Route: 041
     Dates: start: 20210701
  2. ERIBULIN MESYLATE [Suspect]
     Active Substance: ERIBULIN MESYLATE
     Indication: Gastric cancer
     Dosage: 1 MILLIGRAM/SQ. METER
     Route: 065
     Dates: start: 20210701
  3. ERIBULIN [Concomitant]
     Active Substance: ERIBULIN
     Indication: Gastric cancer
     Dosage: 2.1 MILLIGRAM/SQ. METER, Q3WK CUMULATIVE DOSE TO FIRST REACTION (NUMBER) = 3.15 MILLIGRAM/SQUARE MET
     Route: 042
     Dates: start: 20210701, end: 20210811
  4. OXINORM [Concomitant]
     Indication: Tumour pain
     Dosage: 2.5 MILLIGRAM, PRN
     Route: 048
     Dates: start: 20210622, end: 20210728
  5. OXYCODONE HYDROCHLORIDE [Concomitant]
     Active Substance: OXYCODONE HYDROCHLORIDE
     Indication: Tumour pain
     Dosage: 5 MILLIGRAM, Q12H
     Route: 048
     Dates: start: 20210630, end: 20210728
  6. LOXOPROFEN [Concomitant]
     Active Substance: LOXOPROFEN
     Indication: Tumour pain
     Dosage: 60 MILLIGRAM, Q8H
     Route: 048
     Dates: start: 2020
  7. VOLTAREN [Concomitant]
     Active Substance: DICLOFENAC SODIUM
     Indication: Tumour pain
     Dosage: 25 MILLIGRAM, PRN
     Route: 054
     Dates: start: 20210519
  8. CALONAL [Concomitant]
     Active Substance: ACETAMINOPHEN
     Indication: Tumour pain
     Dosage: 500 MILLIGRAM, Q6H
     Route: 048
     Dates: start: 20210602
  9. AZILSARTAN KAMEDOXOMIL [Concomitant]
     Active Substance: AZILSARTAN KAMEDOXOMIL
     Indication: Hypertension
     Dosage: 20 MILLIGRAM, QD
     Route: 048
     Dates: start: 20210519
  10. VONOPRAZAN FUMARATE [Concomitant]
     Active Substance: VONOPRAZAN FUMARATE
     Indication: Gastritis prophylaxis
     Dosage: 20 MILLIGRAM, QD
     Route: 048
     Dates: start: 20210407
  11. MAGNESIUM OXIDE [Concomitant]
     Active Substance: MAGNESIUM OXIDE
     Indication: Constipation
     Dosage: 220 MILLIGRAM, Q8H
     Route: 048
     Dates: start: 2021
  12. ZOLPIDEM TARTRATE [Concomitant]
     Active Substance: ZOLPIDEM TARTRATE
     Indication: Insomnia
     Dosage: 1 DOSAGE FORM, QD
     Route: 048
     Dates: start: 20201225
  13. NOVAMIN [Concomitant]
     Indication: Prophylaxis of nausea and vomiting
     Dosage: 5 MILLIGRAM, Q8H
     Route: 048
     Dates: start: 20210707
  14. CLINDAMYCIN PHOSPHATE [Concomitant]
     Active Substance: CLINDAMYCIN PHOSPHATE
     Indication: Folliculitis
     Dosage: ADEQUATE DOSE, PRN
     Route: 061
     Dates: start: 20210311
  15. SODIUM GUALENATE MONOHYDRATE [Concomitant]
     Active Substance: SODIUM GUALENATE MONOHYDRATE
     Indication: Stomatitis
     Dosage: ADEQUATE DOSE, PRN
     Route: 002
     Dates: start: 20210331
  16. URSO [Concomitant]
     Active Substance: URSODIOL
     Indication: Liver disorder
     Dosage: 100 MILLIGRAM, Q8H
     Route: 048
     Dates: start: 20210707
  17. FENTANYL [Concomitant]
     Active Substance: FENTANYL
     Indication: Tumour pain
     Dosage: TAPE (INCLUDING POULTICE)  1 DF, EVERYDAY
     Route: 062
     Dates: start: 20210728
  18. BISOPROLOL FUMARATE [Concomitant]
     Active Substance: BISOPROLOL FUMARATE
     Indication: Cardiovascular event prophylaxis
     Dosage: 0.625 MG, EVERYDAY  TABLET
     Route: 048
     Dates: start: 20210805
  19. LEVOTHYROXINE [Concomitant]
     Active Substance: LEVOTHYROXINE
     Indication: Hypothyroidism
     Dosage: 100 UG, EVERYDAY TABLET
     Route: 048
     Dates: start: 20210818

REACTIONS (2)
  - Cardiac failure [Recovered/Resolved]
  - Pulmonary oedema [Not Recovered/Not Resolved]

NARRATIVE: CASE EVENT DATE: 20210721
